FAERS Safety Report 6413209-2 (Version None)
Quarter: 2009Q4

REPORT INFORMATION
  Report Type: 
  Country: None (occurrence: None)
  Receive Date: 20091026
  Receipt Date: 20091019
  Transmission Date: 20100525
  Serious: Yes (Death)
  Sender: FDA-Public Use
  Company Number: PHHY2009GB44135

PATIENT
  Sex: Male

DRUGS (9)
  1. CLOZARIL [Suspect]
     Indication: SCHIZOPHRENIA
     Dosage: 300 MG
     Dates: start: 20090916
  2. DEPAKOTE [Concomitant]
     Indication: HYPOMANIA
     Dosage: 500 MG, TID
     Dates: start: 20091001
  3. NULYTELY [Concomitant]
     Dosage: TWO SACHETS DAILY
     Dates: start: 20091001
  4. HALOPERIDOL [Concomitant]
     Indication: HYPOMANIA
     Dosage: 10 MG, TID
     Dates: start: 20091001
  5. CHLORMETHIAZOLE [Concomitant]
     Dosage: 15 ML
     Dates: start: 20091001
  6. PROCYCLIDINE HYDROCHLORIDE 2MG TAB [Concomitant]
     Dosage: 5 MG, TID
     Dates: start: 20091001
  7. OMEPRAZOLE [Concomitant]
     Dosage: 20 MG
     Dates: start: 20091001
  8. LACTULOSE [Concomitant]
     Dosage: 10 ML
     Dates: start: 20091001
  9. ENSURE PLUS [Concomitant]
     Dosage: UNK
     Dates: start: 20091001

REACTIONS (2)
  - ASPHYXIA [None]
  - REGURGITATION [None]
